FAERS Safety Report 5476939-5 (Version None)
Quarter: 2007Q4

REPORT INFORMATION
  Report Type: 
  Country: None (occurrence: None)
  Receive Date: 20071004
  Receipt Date: 20070920
  Transmission Date: 20080405
  Serious: Yes (Life-Threatening)
  Sender: FDA-Public Use
  Company Number: JP-PFIZER INC-2007078790

PATIENT
  Age: 53 Year
  Sex: Female

DRUGS (3)
  1. SOLU-CORTEF [Suspect]
     Indication: ASTHMA
     Dosage: DAILY DOSE:200MG
     Route: 042
  2. PREDONINE [Suspect]
     Indication: ASTHMA
     Dosage: DAILY DOSE:100MG
     Route: 042
  3. NEOPHYLLIN [Concomitant]

REACTIONS (1)
  - ASTHMA [None]
